FAERS Safety Report 19427024 (Version 1)
Quarter: 2021Q2

REPORT INFORMATION
  Report Type: Spontaneous
  Country: CA (occurrence: CA)
  Receive Date: 20210616
  Receipt Date: 20210616
  Transmission Date: 20210717
  Serious: Yes (Other)
  Sender: FDA-Public Use
  Company Number: CA-ASSERTIO THERAPEUTICS, INC.-CA-2021AST000099

PATIENT

DRUGS (2)
  1. INDOMETHACIN ORAL SUSPENSION [Suspect]
     Active Substance: INDOMETHACIN
     Indication: PRODUCT USED FOR UNKNOWN INDICATION
     Dosage: 25 MG, TID
  2. INDOMETHACIN ORAL SUSPENSION [Suspect]
     Active Substance: INDOMETHACIN
     Dosage: 75 MG, TID

REACTIONS (1)
  - Myoclonus [Recovered/Resolved]
